FAERS Safety Report 22955085 (Version 3)
Quarter: 2023Q4

REPORT INFORMATION
  Report Type: Spontaneous
  Country: BR (occurrence: BR)
  Receive Date: 20230918
  Receipt Date: 20231004
  Transmission Date: 20240110
  Serious: Yes (Life-Threatening, Hospitalization, Other)
  Sender: FDA-Public Use
  Company Number: BR-TAKEDA-2023TUS089095

PATIENT
  Age: 57 Year
  Sex: Female
  Weight: 70.9 kg

DRUGS (9)
  1. PANTOZOL [Suspect]
     Active Substance: PANTOPRAZOLE SODIUM
     Indication: Gastrointestinal disorder
     Dosage: 20 MILLIGRAM
     Route: 048
  2. PANTOZOL [Suspect]
     Active Substance: PANTOPRAZOLE SODIUM
     Dosage: 40 MILLIGRAM
     Route: 048
  3. WARFARIN SODIUM [Suspect]
     Active Substance: WARFARIN SODIUM
     Indication: Thrombosis
     Dosage: UNK
     Route: 065
  4. PURAN [Concomitant]
     Active Substance: LEVOTHYROXINE SODIUM
     Dosage: 12.5 MICROGRAM
  5. ENTRESTO [Concomitant]
     Active Substance: SACUBITRIL\VALSARTAN
     Dosage: 100 MILLIGRAM, BID
  6. BISOPROLOL FUMARATE [Concomitant]
     Active Substance: BISOPROLOL FUMARATE
     Dosage: 10 MILLIGRAM
  7. SPIRONOLACTONE [Concomitant]
     Active Substance: SPIRONOLACTONE
     Dosage: 25 MILLIGRAM
  8. LASIX [Concomitant]
     Active Substance: FUROSEMIDE
     Dosage: 40 MILLIGRAM
  9. ROSUVASTATIN CALCIUM [Concomitant]
     Active Substance: ROSUVASTATIN CALCIUM
     Dosage: UNK

REACTIONS (21)
  - Cardiac arrest [Unknown]
  - Coma [Unknown]
  - Thrombosis [Unknown]
  - Haemorrhagic stroke [Unknown]
  - Cerebral thrombosis [Unknown]
  - Cerebral haemorrhage [Unknown]
  - Haemorrhage [Unknown]
  - Cardiac failure [Unknown]
  - Intracardiac thrombus [Unknown]
  - Infarction [Unknown]
  - Cerebrovascular accident [Unknown]
  - Cardiac disorder [Unknown]
  - Balance disorder [Unknown]
  - Hypercoagulation [Unknown]
  - Amnesia [Unknown]
  - Gait disturbance [Unknown]
  - Pain [Unknown]
  - Eating disorder [Unknown]
  - Blood glucose abnormal [Unknown]
  - Weight decreased [Unknown]
  - Abdominal discomfort [Unknown]
